FAERS Safety Report 13455997 (Version 5)
Quarter: 2017Q3

REPORT INFORMATION
  Report Type: Report from Study
  Country: US (occurrence: US)
  Receive Date: 20170418
  Receipt Date: 20170814
  Transmission Date: 20171127
  Serious: Yes (Other)
  Sender: FDA-Public Use
  Company Number: US-PFIZER INC-2017092769

PATIENT
  Sex: Female

DRUGS (1)
  1. IBRANCE [Suspect]
     Active Substance: PALBOCICLIB
     Indication: BREAST CANCER
     Dosage: 125 MG, DAILY
     Route: 048
     Dates: start: 20170213

REACTIONS (8)
  - Alopecia [Unknown]
  - Dyspnoea [Unknown]
  - Bone marrow failure [Unknown]
  - Night sweats [Recovered/Resolved]
  - Dizziness [Unknown]
  - Fatigue [Unknown]
  - Oral mucosal blistering [Recovering/Resolving]
  - Abdominal pain [Recovering/Resolving]

NARRATIVE: CASE EVENT DATE: 201702
